FAERS Safety Report 9732990 (Version 1)
Quarter: 2013Q4

REPORT INFORMATION
  Report Type: Spontaneous
  Country: US (occurrence: US)
  Receive Date: 20131205
  Receipt Date: 20131205
  Transmission Date: 20140711
  Serious: Yes (Death)
  Sender: FDA-Public Use
  Company Number: US-BMSGILMSD-2009-0021432

PATIENT
  Age: 46 Year
  Sex: Male
  Weight: 82.1 kg

DRUGS (4)
  1. ATRIPLA [Suspect]
     Indication: HIV INFECTION
     Route: 048
     Dates: start: 20061001
  2. ATIVAN [Concomitant]
     Indication: ANXIETY
     Dates: end: 20081204
  3. CELEXA [Concomitant]
     Indication: ANXIETY
     Dates: start: 20080304, end: 20081204
  4. AMBIEN CR [Concomitant]
     Indication: INSOMNIA
     Dates: start: 20090112

REACTIONS (1)
  - Completed suicide [Fatal]
